FAERS Safety Report 8561099-4 (Version None)
Quarter: 2012Q3

REPORT INFORMATION
  Report Type: 
  Country: None (occurrence: None)
  Receive Date: 20120802
  Receipt Date: 20120503
  Transmission Date: 20120928
  Serious: No
  Sender: FDA-Public Use
  Company Number: US-BRISTOL-MYERS SQUIBB COMPANY-16570335

PATIENT
  Age: 2 Decade
  Sex: Female

DRUGS (3)
  1. RITONAVIR [Suspect]
  2. TRUVADA [Suspect]
     Dosage: 1DF:1 TAB
  3. REYATAZ [Suspect]

REACTIONS (1)
  - TEAR DISCOLOURATION [None]
